FAERS Safety Report 6962180-3 (Version None)
Quarter: 2010Q3

REPORT INFORMATION
  Report Type: 
  Country: None (occurrence: None)
  Receive Date: 20100901
  Receipt Date: 20100901
  Transmission Date: 20110219
  Serious: Yes (Hospitalization)
  Sender: FDA-Public Use
  Company Number: None

PATIENT
  Sex: Male
  Weight: 72.2 kg

DRUGS (3)
  1. CARBOPLATIN [Suspect]
     Dosage: 540 MG
     Dates: end: 20100810
  2. ERBITUX [Suspect]
     Dosage: 440 MG
     Dates: end: 20100810
  3. TAXOL [Suspect]
     Dosage: 350 MG
     Dates: end: 20100810

REACTIONS (4)
  - FATIGUE [None]
  - MENTAL STATUS CHANGES [None]
  - PNEUMONIA [None]
  - RADIATION PNEUMONITIS [None]
